FAERS Safety Report 7373309-X (Version None)
Quarter: 2011Q1

REPORT INFORMATION
  Report Type: 
  Country: None (occurrence: None)
  Receive Date: 20110324
  Receipt Date: 20110318
  Transmission Date: 20110831
  Serious: Yes (Hospitalization)
  Sender: FDA-Public Use
  Company Number: BR-ABBOTT-11P-020-0712950-00

PATIENT
  Sex: Male
  Weight: 62 kg

DRUGS (10)
  1. BROMAZEPAM [Concomitant]
     Indication: DEPRESSION
     Route: 048
  2. HUMIRA [Suspect]
     Indication: CROHN'S DISEASE
     Route: 058
     Dates: start: 20100501
  3. PREDNISONE [Concomitant]
     Indication: PRODUCT USED FOR UNKNOWN INDICATION
     Route: 048
  4. HUMIRA [Suspect]
  5. ADEROGIL [Concomitant]
     Indication: PRODUCT USED FOR UNKNOWN INDICATION
     Dosage: 8 DROPS A DAY
  6. VENLAFAXINE [Concomitant]
     Indication: DEPRESSION
     Route: 048
  7. CALCIUM CARBONATE [Concomitant]
     Indication: PRODUCT USED FOR UNKNOWN INDICATION
     Route: 048
  8. AZATHIOPRINE [Concomitant]
     Indication: IMMUNOSUPPRESSANT DRUG THERAPY
     Route: 048
  9. OMEPRAZOLE [Concomitant]
     Indication: GASTRIC DISORDER
     Route: 048
  10. OMEPRAZOLE [Concomitant]
     Indication: PROPHYLAXIS

REACTIONS (11)
  - WOUND COMPLICATION [None]
  - GASTROINTESTINAL PAIN [None]
  - WRONG TECHNIQUE IN DRUG USAGE PROCESS [None]
  - WEIGHT INCREASED [None]
  - DRUG INEFFECTIVE [None]
  - PAIN [None]
  - CROHN'S DISEASE [None]
  - FISTULA DISCHARGE [None]
  - INTESTINAL FISTULA INFECTION [None]
  - ENTEROCUTANEOUS FISTULA [None]
  - DEPRESSION [None]
